FAERS Safety Report 5044280-0 (Version None)
Quarter: 2006Q2

REPORT INFORMATION
  Report Type: 
  Country: None (occurrence: None)
  Receive Date: 20060629
  Receipt Date: 20060616
  Transmission Date: 20061013
  Serious: Yes (Hospitalization)
  Sender: FDA-Public Use
  Company Number: 2006078419

PATIENT
  Age: 68 Year
  Sex: Male

DRUGS (7)
  1. SUTENT [Suspect]
     Indication: GASTROINTESTINAL STROMAL TUMOUR
     Dosage: 50 MG (50 MG, 1 IN 1 D), ORAL
     Route: 048
     Dates: start: 20060519, end: 20060529
  2. AMLODIPINE [Concomitant]
  3. MEGACE [Concomitant]
  4. VASTAREL (TRIMETAZIDINE HYDROCHLORIDE) [Concomitant]
  5. HYOSIN COMP                     (HYOSCINE BUTYLBROMIDE, METAMIZOLE SOD [Concomitant]
  6. MAXOLON [Concomitant]
  7. MULTIPLE VITAMINS (ASCORBIC ACID, ERGOCALCIFEROL, FOLIC ACID, RETINOL, [Concomitant]

REACTIONS (4)
  - ANOREXIA [None]
  - LETHARGY [None]
  - NAUSEA [None]
  - VOMITING [None]
